FAERS Safety Report 12812537 (Version 4)
Quarter: 2016Q4

REPORT INFORMATION
  Report Type: Spontaneous
  Country: JP (occurrence: JP)
  Receive Date: 20161005
  Receipt Date: 20161201
  Transmission Date: 20170207
  Serious: Yes (Hospitalization, Other)
  Sender: FDA-Public Use
  Company Number: JP-009507513-1610JPN000601

PATIENT
  Age: 66 Year
  Sex: Male
  Weight: 86.4 kg

DRUGS (14)
  1. PEGINTRON [Suspect]
     Active Substance: PEGINTERFERON ALFA-2B
     Dosage: UNK
     Route: 058
     Dates: start: 2011, end: 2012
  2. PEGINTRON [Suspect]
     Active Substance: PEGINTERFERON ALFA-2B
     Dosage: UNK
     Dates: start: 2013, end: 2013
  3. NEXIUM [Concomitant]
     Active Substance: ESOMEPRAZOLE MAGNESIUM
     Indication: GASTRIC ULCER
     Dosage: 10 MG, UNK
     Route: 048
  4. LACTULOSE. [Concomitant]
     Active Substance: LACTULOSE
     Indication: HYPERAMMONAEMIA
     Dosage: 18 G, UNK
     Route: 048
  5. REBETOL [Suspect]
     Active Substance: RIBAVIRIN
     Indication: HEPATIC CIRRHOSIS
     Dosage: 1000 MG, QD
     Route: 048
     Dates: start: 20160803, end: 20160920
  6. MAGMITT [Concomitant]
     Active Substance: MAGNESIUM OXIDE
     Dosage: UNK
     Route: 048
  7. SOVALDI [Suspect]
     Active Substance: SOFOSBUVIR
     Indication: HEPATITIS C
     Dosage: 400 MG, QD
     Route: 048
     Dates: start: 20160814, end: 20160920
  8. REBETOL [Suspect]
     Active Substance: RIBAVIRIN
     Dosage: UNK
     Route: 048
     Dates: start: 2013, end: 2013
  9. LICKLE [Concomitant]
     Active Substance: ISOLEUCINE\LEUCINE\VALINE
     Indication: HYPOALBUMINAEMIA
     Dosage: 3 DF, UNK
     Route: 048
  10. L CARTIN [Concomitant]
     Active Substance: LEVOCARNITINE HYDROCHLORIDE
     Indication: CARNITINE DEFICIENCY
     Dosage: 1800 MG, UNK
     Route: 048
  11. REBETOL [Suspect]
     Active Substance: RIBAVIRIN
     Dosage: UNK
     Route: 048
     Dates: start: 2011, end: 2012
  12. SOVALDI [Suspect]
     Active Substance: SOFOSBUVIR
     Indication: HEPATIC CIRRHOSIS
     Dosage: 800 MG, QD
     Route: 048
     Dates: start: 20160803, end: 20160813
  13. LIVACT [Concomitant]
     Active Substance: AMINO ACIDS
     Dosage: UNK
     Route: 048
  14. URSODIOL. [Concomitant]
     Active Substance: URSODIOL
     Indication: HEPATIC CIRRHOSIS
     Dosage: 90 MG, UNK
     Route: 048

REACTIONS (6)
  - Hepatic cirrhosis [Unknown]
  - Hepatic encephalopathy [Recovered/Resolved]
  - Infection reactivation [Unknown]
  - Intervertebral discitis [Unknown]
  - Hyperammonaemia [Unknown]
  - Hepatocellular carcinoma [Unknown]

NARRATIVE: CASE EVENT DATE: 2012
